FAERS Safety Report 23711022 (Version 2)
Quarter: 2024Q2

REPORT INFORMATION
  Report Type: Report from Study
  Country: FR (occurrence: FR)
  Receive Date: 20240405
  Receipt Date: 20240419
  Transmission Date: 20240716
  Serious: Yes (Other)
  Sender: FDA-Public Use
  Company Number: FR-TAKEDA-2024TUS032234

PATIENT
  Age: 87 Year
  Sex: Male

DRUGS (24)
  1. TEDUGLUTIDE [Suspect]
     Active Substance: TEDUGLUTIDE
     Indication: Short-bowel syndrome
     Dosage: 4.6 MILLIGRAM, QD
     Route: 042
     Dates: start: 20171027, end: 20171127
  2. TEDUGLUTIDE [Suspect]
     Active Substance: TEDUGLUTIDE
     Indication: Short-bowel syndrome
     Dosage: 4.6 MILLIGRAM, QD
     Route: 042
     Dates: start: 20171027, end: 20171127
  3. TEDUGLUTIDE [Suspect]
     Active Substance: TEDUGLUTIDE
     Indication: Short-bowel syndrome
     Dosage: 4.6 MILLIGRAM, QD
     Route: 042
     Dates: start: 20171027, end: 20171127
  4. TEDUGLUTIDE [Suspect]
     Active Substance: TEDUGLUTIDE
     Indication: Short-bowel syndrome
     Dosage: 4.6 MILLIGRAM, QD
     Route: 042
     Dates: start: 20171027, end: 20171127
  5. TEDUGLUTIDE [Suspect]
     Active Substance: TEDUGLUTIDE
     Dosage: 2.3 MILLIGRAM, QD
     Route: 042
     Dates: start: 20171128, end: 20180211
  6. TEDUGLUTIDE [Suspect]
     Active Substance: TEDUGLUTIDE
     Dosage: 2.3 MILLIGRAM, QD
     Route: 042
     Dates: start: 20171128, end: 20180211
  7. TEDUGLUTIDE [Suspect]
     Active Substance: TEDUGLUTIDE
     Dosage: 2.3 MILLIGRAM, QD
     Route: 042
     Dates: start: 20171128, end: 20180211
  8. TEDUGLUTIDE [Suspect]
     Active Substance: TEDUGLUTIDE
     Dosage: 2.3 MILLIGRAM, QD
     Route: 042
     Dates: start: 20171128, end: 20180211
  9. TEDUGLUTIDE [Suspect]
     Active Substance: TEDUGLUTIDE
     Dosage: 4.6 MILLIGRAM, QD
     Route: 042
     Dates: start: 20180212, end: 20180214
  10. TEDUGLUTIDE [Suspect]
     Active Substance: TEDUGLUTIDE
     Dosage: 4.6 MILLIGRAM, QD
     Route: 042
     Dates: start: 20180212, end: 20180214
  11. TEDUGLUTIDE [Suspect]
     Active Substance: TEDUGLUTIDE
     Dosage: 4.6 MILLIGRAM, QD
     Route: 042
     Dates: start: 20180212, end: 20180214
  12. TEDUGLUTIDE [Suspect]
     Active Substance: TEDUGLUTIDE
     Dosage: 4.6 MILLIGRAM, QD
     Route: 042
     Dates: start: 20180212, end: 20180214
  13. TEDUGLUTIDE [Suspect]
     Active Substance: TEDUGLUTIDE
     Dosage: 4.4 MILLIGRAM, QD
     Route: 042
     Dates: start: 20180215, end: 20180408
  14. TEDUGLUTIDE [Suspect]
     Active Substance: TEDUGLUTIDE
     Dosage: 4.4 MILLIGRAM, QD
     Route: 042
     Dates: start: 20180215, end: 20180408
  15. TEDUGLUTIDE [Suspect]
     Active Substance: TEDUGLUTIDE
     Dosage: 4.4 MILLIGRAM, QD
     Route: 042
     Dates: start: 20180215, end: 20180408
  16. TEDUGLUTIDE [Suspect]
     Active Substance: TEDUGLUTIDE
     Dosage: 4.4 MILLIGRAM, QD
     Route: 042
     Dates: start: 20180215, end: 20180408
  17. TEDUGLUTIDE [Suspect]
     Active Substance: TEDUGLUTIDE
     Dosage: 4.2 MILLIGRAM, QD
     Route: 042
     Dates: start: 20180409
  18. TEDUGLUTIDE [Suspect]
     Active Substance: TEDUGLUTIDE
     Dosage: 4.2 MILLIGRAM, QD
     Route: 042
     Dates: start: 20180409
  19. TEDUGLUTIDE [Suspect]
     Active Substance: TEDUGLUTIDE
     Dosage: 4.2 MILLIGRAM, QD
     Route: 042
     Dates: start: 20180409
  20. TEDUGLUTIDE [Suspect]
     Active Substance: TEDUGLUTIDE
     Dosage: 4.2 MILLIGRAM, QD
     Route: 042
     Dates: start: 20180409
  21. SELENIUM [Concomitant]
     Active Substance: SELENIUM
     Indication: Prophylaxis
     Dosage: 1 DOSAGE FORM, QD
     Route: 048
     Dates: start: 201807
  22. ZINC GLUCONATE [Concomitant]
     Active Substance: ZINC GLUCONATE
     Indication: Prophylaxis
     Dosage: 30 MILLIGRAM, QD
     Route: 048
     Dates: start: 201807
  23. POTASSIUM CHLORIDE [Concomitant]
     Active Substance: POTASSIUM CHLORIDE
     Indication: Prophylaxis
     Dosage: 1 DOSAGE FORM
     Route: 048
     Dates: start: 20180225, end: 201803
  24. WARFARIN [Concomitant]
     Active Substance: WARFARIN
     Indication: Cardiovascular disorder
     Dosage: 3.5 MILLIGRAM, QD
     Route: 048
     Dates: start: 201804

REACTIONS (1)
  - Hypothyroidism [Recovered/Resolved]

NARRATIVE: CASE EVENT DATE: 20221018
